FAERS Safety Report 12427492 (Version 1)
Quarter: 2016Q2

REPORT INFORMATION
  Report Type: Spontaneous
  Country: NL (occurrence: NL)
  Receive Date: 20160602
  Receipt Date: 20160602
  Transmission Date: 20160815
  Serious: Yes (Other)
  Sender: FDA-Public Use
  Company Number: NL-ACCORD-040952

PATIENT
  Age: 69 Year
  Sex: Male

DRUGS (5)
  1. CHLORAMBUCIL [Suspect]
     Active Substance: CHLORAMBUCIL
     Indication: PERIPHERAL T-CELL LYMPHOMA UNSPECIFIED STAGE III
  2. PREDNISOLONE. [Suspect]
     Active Substance: PREDNISOLONE
     Indication: PERIPHERAL T-CELL LYMPHOMA UNSPECIFIED STAGE III
  3. ETOPOSIDE. [Suspect]
     Active Substance: ETOPOSIDE
     Indication: PERIPHERAL T-CELL LYMPHOMA UNSPECIFIED STAGE III
  4. RITUXIMAB [Suspect]
     Active Substance: RITUXIMAB
     Indication: PERIPHERAL T-CELL LYMPHOMA UNSPECIFIED STAGE III
  5. LOMUSTINE. [Suspect]
     Active Substance: LOMUSTINE
     Indication: PERIPHERAL T-CELL LYMPHOMA UNSPECIFIED STAGE III

REACTIONS (2)
  - Toxicity to various agents [Unknown]
  - Off label use [Unknown]
